FAERS Safety Report 8517507-8 (Version None)
Quarter: 2012Q3

REPORT INFORMATION
  Report Type: 
  Country: None (occurrence: None)
  Receive Date: 20120718
  Receipt Date: 20120709
  Transmission Date: 20120928
  Serious: Yes (Other)
  Sender: FDA-Public Use
  Company Number: US-ASTRAZENECA-2012SE27996

PATIENT
  Age: 32 Year
  Sex: Male

DRUGS (3)
  1. SEROQUEL [Suspect]
     Route: 048
  2. LAMICTAL [Concomitant]
  3. SEROQUEL [Suspect]
     Route: 048

REACTIONS (4)
  - SOMNOLENCE [None]
  - MEMORY IMPAIRMENT [None]
  - CONVULSION [None]
  - ANGER [None]
